FAERS Safety Report 6157479-7 (Version None)
Quarter: 2009Q2

REPORT INFORMATION
  Report Type: 
  Country: None (occurrence: None)
  Receive Date: 20090416
  Receipt Date: 20090409
  Transmission Date: 20091009
  Serious: Yes (Other)
  Sender: FDA-Public Use
  Company Number: PHHY2009DE13572

PATIENT
  Sex: Male

DRUGS (3)
  1. MYCOPHENOLIC ACID [Suspect]
     Indication: RENAL TRANSPLANT
     Dosage: 1080 MG/D
     Route: 048
     Dates: start: 20080403, end: 20080915
  2. PROGRAF [Concomitant]
     Indication: RENAL TRANSPLANT
     Dosage: 14 MG/D
     Route: 048
     Dates: start: 20080507
  3. DECORTIN [Concomitant]
     Indication: RENAL TRANSPLANT
     Dosage: 5 MG/D
     Route: 048
     Dates: start: 20080410

REACTIONS (2)
  - ANAEMIA [None]
  - BONE MARROW FAILURE [None]
